FAERS Safety Report 19608375 (Version 1)
Quarter: 2021Q3

REPORT INFORMATION
  Report Type: Spontaneous
  Country: US (occurrence: US)
  Receive Date: 20210726
  Receipt Date: 20210726
  Transmission Date: 20211014
  Serious: Yes (Other)
  Sender: FDA-Public Use
  Company Number: US-JNJFOC-20210737980

PATIENT
  Age: 6 Year
  Sex: Male

DRUGS (7)
  1. RISPERDAL [Suspect]
     Active Substance: RISPERIDONE
     Indication: BEHAVIOUR DISORDER
     Dosage: 1 MG/ML 1/4 ML IN THE AM AS NEEDED, 1/4 ML AT NOON AND 1.75ML AT NIGHT
     Route: 048
     Dates: start: 20100525
  2. RISPERDAL [Suspect]
     Active Substance: RISPERIDONE
     Indication: INTERMITTENT EXPLOSIVE DISORDER
  3. RISPERDAL [Suspect]
     Active Substance: RISPERIDONE
     Indication: AFFECTIVE DISORDER
  4. RISPERDAL [Suspect]
     Active Substance: RISPERIDONE
     Indication: INTERMITTENT EXPLOSIVE DISORDER
  5. RISPERDAL [Suspect]
     Active Substance: RISPERIDONE
     Indication: BEHAVIOUR DISORDER
     Dosage: 1 MG/ML, 1/4 ML IN THE MORNING, 1/2 TO 3/4 ML IN THE EVENING WITH AN OPTIONAL 1/4 ML DURING THE DAY
     Route: 048
     Dates: start: 20100525
  6. RISPERDAL [Suspect]
     Active Substance: RISPERIDONE
     Indication: PRODUCT USED FOR UNKNOWN INDICATION
     Dosage: VARYING DOSES OG 0.25 MG, 1.75 MG AND 2 MG
     Route: 065
  7. RISPERDAL [Suspect]
     Active Substance: RISPERIDONE
     Indication: AFFECTIVE DISORDER

REACTIONS (3)
  - Initial insomnia [Unknown]
  - Tardive dyskinesia [Unknown]
  - Confusional state [Unknown]

NARRATIVE: CASE EVENT DATE: 20100917
